FAERS Safety Report 12491039 (Version 1)
Quarter: 2016Q2

REPORT INFORMATION
  Report Type: Spontaneous
  Country: KR (occurrence: KR)
  Receive Date: 20160623
  Receipt Date: 20160623
  Transmission Date: 20160815
  Serious: Yes (Other)
  Sender: FDA-Public Use
  Company Number: KR-ROCHE-1780234

PATIENT

DRUGS (5)
  1. LUCENTIS [Suspect]
     Active Substance: RANIBIZUMAB
     Dosage: LEFT EYE
     Route: 050
     Dates: start: 200804
  2. LUCENTIS [Suspect]
     Active Substance: RANIBIZUMAB
     Dosage: LEFT AND RIGHT EYES
     Route: 050
     Dates: start: 200806
  3. LUCENTIS [Suspect]
     Active Substance: RANIBIZUMAB
     Dosage: LEFT EYE
     Route: 050
     Dates: start: 200803
  4. LUCENTIS [Suspect]
     Active Substance: RANIBIZUMAB
     Dosage: LEFT EYE
     Route: 050
     Dates: start: 200907
  5. LUCENTIS [Suspect]
     Active Substance: RANIBIZUMAB
     Indication: DIABETIC RETINAL OEDEMA
     Dosage: LEFT EYE
     Route: 050
     Dates: start: 200802

REACTIONS (2)
  - Cerebral infarction [Unknown]
  - Hemianopia [Unknown]

NARRATIVE: CASE EVENT DATE: 201505
